FAERS Safety Report 9508982 (Version 1)
Quarter: 2013Q3

REPORT INFORMATION
  Report Type: Spontaneous
  Country: US (occurrence: US)
  Receive Date: 20130909
  Receipt Date: 20130909
  Transmission Date: 20140515
  Serious: No
  Sender: FDA-Public Use
  Company Number: US-BRISTOL-MYERS SQUIBB COMPANY-19056480

PATIENT
  Age: 51 Year
  Sex: Male
  Weight: 88.43 kg

DRUGS (6)
  1. ABILIFY [Suspect]
     Indication: HEADACHE
     Dates: start: 2008
  2. ABILIFY [Suspect]
     Indication: DYSPHEMIA
     Dates: start: 2008
  3. ABILIFY [Suspect]
     Indication: HOT FLUSH
     Dates: start: 2008
  4. XANAX [Concomitant]
  5. XANAX [Concomitant]
  6. ADDERALL [Concomitant]

REACTIONS (2)
  - Headache [Unknown]
  - Dysphemia [Unknown]
